FAERS Safety Report 7016715-5 (Version None)
Quarter: 2010Q3

REPORT INFORMATION
  Report Type: 
  Country: None (occurrence: None)
  Receive Date: 20100927
  Receipt Date: 20100914
  Transmission Date: 20110219
  Serious: Yes (Hospitalization)
  Sender: FDA-Public Use
  Company Number: US-ROCHE-682482

PATIENT
  Sex: Female
  Weight: 72.2 kg

DRUGS (24)
  1. TRASTUZUMAB [Suspect]
     Dosage: FORM REPORTED AS VIALS. ^TOTAL DOSE REPORTED AS 443 MG^. TEMPORARILY STOPPED.
     Route: 042
     Dates: start: 20090223, end: 20091012
  2. DOCETAXEL [Suspect]
     Dosage: FORM REPORTED AS VIALS. ^TOTAL DOSE REPORTED AS 134 MG^. LAST DOSE PRIOR TO SAE ON 08 JUNE 2009
     Route: 042
     Dates: start: 20090223
  3. CARBOPLATIN [Suspect]
     Dosage: FORM REPORTED AS VIALS. DOSING AMOUNT REPORTED AS 6 AUC.
     Route: 042
     Dates: start: 20090223
  4. CEFAZOLIN [Concomitant]
     Dates: start: 20091012, end: 20091014
  5. LOVENOX [Concomitant]
     Dates: start: 20091012, end: 20091019
  6. LOVENOX [Concomitant]
     Dates: start: 20091221, end: 20091223
  7. TORADOL [Concomitant]
     Route: 042
     Dates: start: 20091012, end: 20091017
  8. ATIVAN [Concomitant]
     Dates: start: 20091012, end: 20091111
  9. TYLENOL [Concomitant]
     Dates: start: 20091012, end: 20091019
  10. DILANDIOL [Concomitant]
     Dosage: TDD: 1-2 MG.
     Dates: start: 20091012, end: 20091017
  11. INVANZ [Concomitant]
     Dates: start: 20091218, end: 20091223
  12. VANCOMYCIN [Concomitant]
     Dates: start: 20091217, end: 20091220
  13. ZOSYN [Concomitant]
     Dates: start: 20091216, end: 20091221
  14. DILAUDID [Concomitant]
     Dates: start: 20091218, end: 20091223
  15. PRILOSEC [Concomitant]
     Dates: start: 20090302
  16. TAMOXIFEN CITRATE [Concomitant]
     Dates: start: 20090921
  17. BYSTOLIC [Concomitant]
     Dates: start: 20100201
  18. XANAX [Concomitant]
     Dates: start: 20060101
  19. CALCIUM [Concomitant]
     Dates: start: 20060101
  20. FISH OIL [Concomitant]
     Dates: start: 20100101
  21. VITAMIN B [Concomitant]
     Dates: start: 20100101
  22. OXYCONTIN [Concomitant]
     Dosage: TDD: 5/ 325 MG
     Dates: start: 20090901, end: 20100201
  23. LYRICA [Concomitant]
     Dates: start: 20090401
  24. AMBIEN [Concomitant]
     Dates: start: 20100101

REACTIONS (2)
  - ABSCESS [None]
  - WOUND COMPLICATION [None]
